FAERS Safety Report 7865915-0 (Version None)
Quarter: 2011Q4

REPORT INFORMATION
  Report Type: 
  Country: None (occurrence: None)
  Receive Date: 20111028
  Receipt Date: 20110321
  Transmission Date: 20120403
  Serious: No
  Sender: FDA-Public Use
  Company Number: US-GLAXOSMITHKLINE-A0919204A

PATIENT
  Age: 65 Year
  Sex: Female

DRUGS (16)
  1. BENAZEPRIL HYDROCHLORIDE [Concomitant]
  2. ADVAIR DISKUS 100/50 [Suspect]
     Indication: ASTHMA
     Dosage: 1PUFF TWICE PER DAY
     Route: 055
     Dates: start: 20060301
  3. ASPIRIN [Concomitant]
  4. TERAZOSIN HCL [Concomitant]
  5. ACIPHEX [Concomitant]
  6. SINGULAIR [Concomitant]
  7. VITAMIN TAB [Concomitant]
  8. FOLIC ACID [Concomitant]
  9. DILTIAZEM HCL [Concomitant]
  10. FEXOFENADINE [Concomitant]
  11. SIMVASTATIN [Concomitant]
  12. HYDROCHLOROTHIAZIDE [Concomitant]
  13. ALPRAZOLAM [Concomitant]
  14. TRICOR [Concomitant]
  15. ALBUTEROL [Concomitant]
  16. CALCIUM CARBONATE [Concomitant]

REACTIONS (3)
  - DYSPNOEA [None]
  - PRODUCT QUALITY ISSUE [None]
  - DRUG INEFFECTIVE [None]
